FAERS Safety Report 6397809-4 (Version None)
Quarter: 2009Q4

REPORT INFORMATION
  Report Type: 
  Country: None (occurrence: None)
  Receive Date: 20091006
  Receipt Date: 20091001
  Transmission Date: 20100525
  Serious: Yes (Death)
  Sender: FDA-Public Use
  Company Number: 2009US003496

PATIENT
  Age: 59 Year
  Sex: Female

DRUGS (1)
  1. PROGRAF         (TACROLIMUS) [Suspect]
     Indication: TRANSPLANT

REACTIONS (1)
  - DEATH [None]
